FAERS Safety Report 10695676 (Version 1)
Quarter: 2015Q1

REPORT INFORMATION
  Report Type: Spontaneous
  Country: US (occurrence: US)
  Receive Date: 20150107
  Receipt Date: 20150107
  Transmission Date: 20150721
  Serious: No
  Sender: FDA-Public Use
  Company Number: US-PFIZER INC-2015000966

PATIENT
  Age: 71 Year
  Sex: Male
  Weight: 93 kg

DRUGS (1)
  1. INLYTA [Suspect]
     Active Substance: AXITINIB
     Indication: RENAL CANCER
     Dosage: 5 MG, 2X/DAY
     Dates: start: 20140819

REACTIONS (4)
  - Musculoskeletal pain [Unknown]
  - Chest pain [Unknown]
  - Pain in extremity [Unknown]
  - Bronchial disorder [Unknown]

NARRATIVE: CASE EVENT DATE: 201409
